FAERS Safety Report 6544472 (Version 13)
Quarter: 2013Q2

REPORT INFORMATION
  Report Type: Spontaneous
  Country: US (occurrence: US)
  Receive Date: 20080206
  Receipt Date: 20130516
  Transmission Date: 20140414
  Serious: Yes (Death, Hospitalization, Other)
  Sender: FDA-Public Use
  Company Number: PHEH2008US01388

PATIENT
  Age: 75 Year
  Sex: Female
  Weight: 62.59 kg

DRUGS (13)
  1. AREDIA [Suspect]
     Dosage: 90 MG, QMO
     Dates: start: 1999
  2. AREDIA [Suspect]
     Dosage: 90 MG, Q3MO
     Dates: end: 200611
  3. ZOMETA [Suspect]
     Dosage: 6 MG, QMO
     Route: 042
     Dates: end: 20060301
  4. FASLODEX [Concomitant]
     Dates: start: 200210, end: 200708
  5. ARIMIDEX ^BERAGENA^ [Concomitant]
     Dates: start: 200708
  6. FLAGYL [Concomitant]
     Dosage: 500 MG,
     Route: 048
  7. PENICILLIN ^GRUNENTHAL^ [Concomitant]
     Dosage: 500 MG,
  8. RADIATION [Concomitant]
  9. ATIVAN [Concomitant]
  10. AMOXICILLIN [Concomitant]
     Dosage: 500 MG,
  11. DECADRON                                /CAN/ [Concomitant]
  12. VALTREX [Concomitant]
     Dosage: 6500 MG,
  13. THALIDOMIDE [Concomitant]
     Dosage: 50 MG,
     Dates: start: 20060203

REACTIONS (57)
  - Breast cancer metastatic [Fatal]
  - Asthma [Unknown]
  - Mass [Unknown]
  - Anaemia [Unknown]
  - Osteonecrosis of jaw [Unknown]
  - Pain [Unknown]
  - Infection [Unknown]
  - Osteomyelitis [Unknown]
  - Deformity [Unknown]
  - Gingival abscess [Unknown]
  - Impaired healing [Unknown]
  - Anxiety [Unknown]
  - Injury [Unknown]
  - Disability [Unknown]
  - Disease progression [Unknown]
  - Metastases to liver [Unknown]
  - Renal failure chronic [Unknown]
  - Osteopenia [Unknown]
  - Scoliosis [Unknown]
  - Arteriosclerosis [Unknown]
  - Diverticulum [Unknown]
  - Exposed bone in jaw [Unknown]
  - Pain in jaw [Unknown]
  - Swelling [Unknown]
  - Spinal compression fracture [Unknown]
  - Hepatic steatosis [Unknown]
  - Chronic obstructive pulmonary disease [Unknown]
  - Type 2 diabetes mellitus [Unknown]
  - Hypothyroidism [Unknown]
  - Emphysema [Unknown]
  - Dilatation ventricular [Unknown]
  - Gastrooesophageal reflux disease [Unknown]
  - Hypertension [Unknown]
  - Duodenal ulcer [Unknown]
  - Mucosal ulceration [Unknown]
  - Primary sequestrum [Unknown]
  - Acquired diaphragmatic eventration [Unknown]
  - Granuloma [Unknown]
  - Splenic calcification [Unknown]
  - Splenic granuloma [Unknown]
  - Osteoarthritis [Unknown]
  - Dyspnoea [Unknown]
  - Lung hyperinflation [Unknown]
  - Tachycardia [Unknown]
  - Cataract [Unknown]
  - Renal atrophy [Unknown]
  - Sinusitis [Unknown]
  - Bone disorder [Unknown]
  - Lymph node calcification [Unknown]
  - Gingival pain [Unknown]
  - Cardiac failure chronic [Unknown]
  - Loose tooth [Unknown]
  - Tooth loss [Unknown]
  - Depression [Unknown]
  - Panic attack [Unknown]
  - Oral pain [Unknown]
  - Gait disturbance [Unknown]
